FAERS Safety Report 5800190 (Version 30)
Quarter: 2013Q1

REPORT INFORMATION
  Report Type: Spontaneous
  Country: US (occurrence: US)
  Receive Date: 20050520
  Receipt Date: 20130328
  Transmission Date: 20140127
  Serious: Yes (Other)
  Sender: FDA-Public Use
  Company Number: PHEH2004US11591

PATIENT
  Age: 51 Year
  Sex: Female
  Weight: 80.27 kg

DRUGS (58)
  1. AREDIA [Suspect]
     Indication: METASTASES TO BONE
     Dosage: 90 MG, UNK
     Dates: start: 20000421, end: 20020216
  2. ZOMETA [Suspect]
     Indication: METASTASES TO BONE
     Dosage: 4 MG, QMO
     Dates: start: 2001
  3. ZOMETA [Suspect]
     Dosage: 4 MG, QW
     Dates: start: 20030129
  4. ZOMETA [Suspect]
     Dosage: 4 MG, Q3W
     Dates: start: 20040225, end: 20050413
  5. ZOMETA [Suspect]
     Dosage: UNK UKN, QW3
     Dates: start: 200408
  6. OXYCONTIN [Concomitant]
     Indication: PAIN
     Dosage: 20 MG, BID
  7. LOTENSIN [Concomitant]
     Dosage: 20 MG, QD
  8. CELEXA [Concomitant]
     Indication: DEPRESSION
     Dosage: 20 MG, QD
  9. LASIX [Concomitant]
     Dosage: 40 MG, BID
  10. K-DUR [Concomitant]
     Dosage: 20 MEQ, BID
  11. FEMARA [Concomitant]
     Dosage: 2.5 MG, QD
     Dates: start: 20000915, end: 20030129
  12. HERCEPTIN [Concomitant]
     Dosage: 4 MG/KG, LOADING DOSE
     Dates: start: 199908
  13. HERCEPTIN [Concomitant]
     Dosage: 2 MG/KG, EVERY WEEK
  14. TAXOL [Concomitant]
     Indication: METASTASIS
     Dates: start: 20000421, end: 20000818
  15. NAVELBINE [Concomitant]
     Dosage: 30MG/M2 UNKDAY1,8
     Dates: start: 20030129, end: 20040204
  16. XANAX [Concomitant]
     Indication: DEPRESSION
  17. TAXOTERE [Concomitant]
     Indication: BREAST CANCER
     Dosage: 75 MG/M2, UNK
     Route: 042
     Dates: start: 199908, end: 20000818
  18. PREDNISONE [Concomitant]
     Dosage: 5 MG, POST TAXOL INFUSION
  19. BENADRYL [Concomitant]
     Dates: start: 20000623
  20. CIMETIDINE [Concomitant]
     Dates: start: 20000623
  21. TYLENOL WITH CODEINE [Concomitant]
     Indication: PAIN
  22. VACCINE BREAST CANCER PROTOCOL [Concomitant]
  23. CELEBREX [Concomitant]
  24. ZYBAN [Concomitant]
  25. LISINOPRIL [Concomitant]
  26. ADVAIR [Concomitant]
  27. RADIATION THERAPY [Concomitant]
  28. KEFLEX                                  /UNK/ [Concomitant]
  29. HERCEPTIN ^GENENTECH^ [Concomitant]
  30. VITAMIN C [Concomitant]
  31. VITAMIN B [Concomitant]
  32. MINERALS NOS [Concomitant]
  33. HYDROCODONE [Concomitant]
  34. LEVAQUIN [Concomitant]
  35. ALBUTEROL [Concomitant]
  36. CEPHALEXIN [Concomitant]
  37. TRAZODONE [Concomitant]
  38. WARFARIN [Concomitant]
  39. METRONIDAZOLE [Concomitant]
  40. CHLORHEXIDINE [Concomitant]
  41. APAP W/HYDROCODONE [Concomitant]
  42. CYMBALTA [Concomitant]
  43. BUPROPION [Concomitant]
  44. DEXAMETHASONE [Concomitant]
  45. PROMETHAZINE [Concomitant]
  46. KYTRIL [Concomitant]
  47. COUMADIN ^BOOTS^ [Concomitant]
     Dosage: UNK UKN, QD
     Route: 048
     Dates: start: 20051019
  48. PREVACID [Concomitant]
     Dosage: 30 MG, QHS
     Route: 048
  49. FASLODEX [Concomitant]
     Dosage: 250 MG, UNK
     Route: 030
  50. COMPAZINE [Concomitant]
  51. DYAZIDE [Concomitant]
     Indication: OEDEMA
     Dosage: UNK UKN, QD
  52. HEPARIN [Concomitant]
  53. SIMVASTATIN [Concomitant]
  54. CALCIUM W/VITAMIN D NOS [Concomitant]
  55. CHEMOTHERAPEUTICS [Concomitant]
  56. ADRIAMYCIN [Concomitant]
  57. CYTOXAN [Concomitant]
  58. VICOPROFEN [Concomitant]

REACTIONS (92)
  - Osteonecrosis of jaw [Not Recovered/Not Resolved]
  - Pain in jaw [Not Recovered/Not Resolved]
  - Trismus [Not Recovered/Not Resolved]
  - Osteomyelitis [Recovering/Resolving]
  - Bone disorder [Unknown]
  - Tooth disorder [Unknown]
  - Pain [Unknown]
  - Anxiety [Unknown]
  - Bone swelling [Recovering/Resolving]
  - Oral disorder [Unknown]
  - Primary sequestrum [Unknown]
  - Infection [Recovered/Resolved]
  - Gingival recession [Unknown]
  - Gingival disorder [Unknown]
  - Swelling [Unknown]
  - Erythema [Unknown]
  - Haemorrhage [Unknown]
  - Anaemia [Unknown]
  - Hyperplasia [Unknown]
  - Bone abscess [Unknown]
  - Inflammation [Unknown]
  - Bone lesion [Unknown]
  - Osteitis deformans [Unknown]
  - Pathological fracture [Unknown]
  - Impaired healing [Recovered/Resolved]
  - Metastases to lung [Not Recovered/Not Resolved]
  - Metastases to bone [Unknown]
  - Pleural effusion [Unknown]
  - Fall [Unknown]
  - Capillary leak syndrome [Unknown]
  - Metastases to spine [Unknown]
  - Dysphagia [Unknown]
  - Blood creatinine increased [Unknown]
  - Gastrooesophageal reflux disease [Unknown]
  - Metastases to bone marrow [Unknown]
  - Rotator cuff syndrome [Unknown]
  - Exostosis [Unknown]
  - Family stress [Unknown]
  - Obesity [Unknown]
  - Red blood cell sedimentation rate increased [Unknown]
  - Depressed mood [Unknown]
  - Sinus tachycardia [Unknown]
  - Heart rate decreased [Recovered/Resolved]
  - Diarrhoea [Unknown]
  - Nausea [Unknown]
  - Vomiting [Unknown]
  - Cardiomegaly [Unknown]
  - Ventricular hypokinesia [Unknown]
  - Malignant neoplasm progression [Unknown]
  - Atelectasis [Unknown]
  - Osteoarthritis [Unknown]
  - Haemorrhoids [Unknown]
  - Sinusitis [Unknown]
  - Hepatic cyst [Unknown]
  - Left atrial dilatation [Unknown]
  - Mitral valve incompetence [Unknown]
  - Bursitis [Unknown]
  - Kyphosis [Unknown]
  - Aortic arteriosclerosis [Unknown]
  - Ejection fraction abnormal [Unknown]
  - Renal failure chronic [Unknown]
  - Glomerular filtration rate abnormal [Unknown]
  - Implant site thrombosis [Unknown]
  - Hypercholesterolaemia [Unknown]
  - Vitamin D deficiency [Unknown]
  - Computerised tomogram coronary artery abnormal [Unknown]
  - Pericardial effusion [Unknown]
  - C-reactive protein increased [Unknown]
  - Intervertebral disc degeneration [Unknown]
  - Compression fracture [Unknown]
  - Diastolic dysfunction [Unknown]
  - Tricuspid valve incompetence [Unknown]
  - Gliosis [Unknown]
  - Upper respiratory tract infection [Unknown]
  - Cardiotoxicity [Unknown]
  - Pulmonary valve incompetence [Unknown]
  - Pulmonary hypertension [Unknown]
  - Back pain [Unknown]
  - Device malfunction [Unknown]
  - Fibrosis [Unknown]
  - Oedema peripheral [Unknown]
  - Pain in extremity [Unknown]
  - Foreign body reaction [Unknown]
  - Osteopenia [Unknown]
  - Dyspnoea exertional [Unknown]
  - Metastases to pleura [Unknown]
  - Liver disorder [Unknown]
  - Oropharyngeal pain [Unknown]
  - Excessive granulation tissue [Unknown]
  - Paraesthesia [Unknown]
  - Hepatic calcification [Unknown]
  - Cerebral small vessel ischaemic disease [Unknown]
